FAERS Safety Report 24592541 (Version 1)
Quarter: 2024Q4

REPORT INFORMATION
  Report Type: Spontaneous
  Country: RO (occurrence: RO)
  Receive Date: 20241108
  Receipt Date: 20241108
  Transmission Date: 20250115
  Serious: Yes (Other)
  Sender: ROCHE
  Company Number: RO-ROCHE-10000122327

PATIENT
  Age: 58 Year
  Sex: Male

DRUGS (2)
  1. ATEZOLIZUMAB [Suspect]
     Active Substance: ATEZOLIZUMAB
     Indication: Product used for unknown indication
     Route: 065
     Dates: start: 20231101
  2. BEVACIZUMAB [Suspect]
     Active Substance: BEVACIZUMAB
     Indication: Product used for unknown indication
     Route: 065
     Dates: start: 20231101

REACTIONS (5)
  - Melaena [Unknown]
  - Varices oesophageal [Unknown]
  - Thrombocytopenia [Unknown]
  - Hypertension [Unknown]
  - Disease progression [Unknown]
